FAERS Safety Report 7462989-6 (Version None)
Quarter: 2011Q2

REPORT INFORMATION
  Report Type: 
  Country: None (occurrence: None)
  Receive Date: 20110506
  Receipt Date: 20110502
  Transmission Date: 20111010
  Serious: Yes (Death, Hospitalization)
  Sender: FDA-Public Use
  Company Number: FR-SANOFI-AVENTIS-2011SA026781

PATIENT
  Age: 79 Year
  Sex: Male

DRUGS (11)
  1. ARICEPT [Concomitant]
     Dates: end: 20101116
  2. KARDEGIC [Concomitant]
     Route: 048
     Dates: end: 20101220
  3. FOLIC ACID [Suspect]
     Route: 048
     Dates: start: 20101122, end: 20101220
  4. ALFUZOSIN HYDROCHLORIDE [Suspect]
     Indication: BENIGN PROSTATIC HYPERPLASIA
     Route: 048
     Dates: start: 20101118, end: 20101220
  5. PHENYTOIN [Suspect]
     Indication: EPILEPSY
     Route: 048
     Dates: start: 20101119, end: 20101220
  6. MOVIPREP [Suspect]
     Indication: CONSTIPATION
     Route: 048
     Dates: start: 20101116, end: 20101220
  7. SULPIRIDE [Concomitant]
     Dates: end: 20101116
  8. OMIX [Concomitant]
     Route: 048
  9. PRAVASTATIN [Concomitant]
     Dates: end: 20101116
  10. DILTIAZEM HCL [Concomitant]
     Dates: end: 20101116
  11. NOOTROPYL [Concomitant]
     Dates: end: 20101116

REACTIONS (1)
  - DRUG RASH WITH EOSINOPHILIA AND SYSTEMIC SYMPTOMS [None]
